FAERS Safety Report 14594196 (Version 1)
Quarter: 2018Q1

REPORT INFORMATION
  Report Type: Spontaneous
  Country: FR (occurrence: FR)
  Receive Date: 20180302
  Receipt Date: 20180302
  Transmission Date: 20180509
  Serious: Yes (Disabling)
  Sender: FDA-Public Use
  Company Number: FR-SA-2018SA038250

PATIENT
  Age: 35 Year
  Sex: Male

DRUGS (1)
  1. LOVENOX [Suspect]
     Active Substance: ENOXAPARIN SODIUM
     Indication: THROMBOSIS PROPHYLAXIS
     Route: 058

REACTIONS (2)
  - Phlebitis [Recovered/Resolved]
  - Drug prescribing error [Unknown]

NARRATIVE: CASE EVENT DATE: 20160113
